FAERS Safety Report 12160533 (Version 5)
Quarter: 2016Q3

REPORT INFORMATION
  Report Type: Report from Study
  Country: JP (occurrence: JP)
  Receive Date: 20160308
  Receipt Date: 20160819
  Transmission Date: 20161109
  Serious: Yes (Death)
  Sender: FDA-Public Use
  Company Number: JP-JNJFOC-20160301782

PATIENT
  Age: 27 Year
  Sex: Male
  Weight: 53 kg

DRUGS (10)
  1. RISPERDAL [Concomitant]
     Active Substance: RISPERIDONE
     Indication: AUTISM SPECTRUM DISORDER
     Route: 048
     Dates: start: 20150415, end: 20151115
  2. CONCERTA [Suspect]
     Active Substance: METHYLPHENIDATE HYDROCHLORIDE
     Indication: ATTENTION DEFICIT/HYPERACTIVITY DISORDER
     Route: 048
     Dates: start: 20150318, end: 20150401
  3. CONCERTA [Suspect]
     Active Substance: METHYLPHENIDATE HYDROCHLORIDE
     Indication: ATTENTION DEFICIT/HYPERACTIVITY DISORDER
     Route: 048
     Dates: start: 20150402, end: 20150408
  4. RISPERDAL [Concomitant]
     Active Substance: RISPERIDONE
     Indication: AUTISM SPECTRUM DISORDER
     Route: 048
     Dates: end: 20151115
  5. CONCERTA [Suspect]
     Active Substance: METHYLPHENIDATE HYDROCHLORIDE
     Indication: ATTENTION DEFICIT/HYPERACTIVITY DISORDER
     Route: 048
     Dates: start: 20150528, end: 20150624
  6. RIVOTRIL [Concomitant]
     Active Substance: CLONAZEPAM
     Indication: BIPOLAR DISORDER
     Route: 048
     Dates: end: 20151115
  7. LEXOTAN [Concomitant]
     Active Substance: BROMAZEPAM
     Indication: SOCIAL ANXIETY DISORDER
     Route: 048
     Dates: end: 20151115
  8. CONCERTA [Suspect]
     Active Substance: METHYLPHENIDATE HYDROCHLORIDE
     Indication: ATTENTION DEFICIT/HYPERACTIVITY DISORDER
     Route: 048
     Dates: start: 20150409, end: 20150527
  9. CONCERTA [Suspect]
     Active Substance: METHYLPHENIDATE HYDROCHLORIDE
     Indication: ATTENTION DEFICIT/HYPERACTIVITY DISORDER
     Route: 048
     Dates: start: 20150625, end: 20151115
  10. ROHYPNOL [Concomitant]
     Active Substance: FLUNITRAZEPAM
     Indication: BIPOLAR DISORDER
     Route: 048
     Dates: end: 20151115

REACTIONS (3)
  - Drug abuse [Fatal]
  - Decreased appetite [Not Recovered/Not Resolved]
  - Completed suicide [Fatal]

NARRATIVE: CASE EVENT DATE: 20150325
